FAERS Safety Report 23416230 (Version 1)
Quarter: 2024Q1

REPORT INFORMATION
  Report Type: Spontaneous
  Country: BR (occurrence: BR)
  Receive Date: 20240118
  Receipt Date: 20240118
  Transmission Date: 20240409
  Serious: Yes (Death, Hospitalization)
  Sender: FDA-Public Use
  Company Number: BR-BAYER-2024A004112

PATIENT
  Age: 76 Year
  Sex: Male

DRUGS (1)
  1. NEXAVAR [Suspect]
     Active Substance: SORAFENIB
     Dosage: 200 MG COM REV CT BL AL/AL X 60

REACTIONS (4)
  - Hepatic cancer [Fatal]
  - Nausea [None]
  - Asthenia [None]
  - Illness [None]
